FAERS Safety Report 12888682 (Version 2)
Quarter: 2016Q4

REPORT INFORMATION
  Report Type: Report from Study
  Country: AU (occurrence: AU)
  Receive Date: 20161027
  Receipt Date: 20161104
  Transmission Date: 20170207
  Serious: Yes (Hospitalization)
  Sender: FDA-Public Use
  Company Number: PHHY2016AU114602

PATIENT
  Age: 74 Year
  Sex: Male

DRUGS (4)
  1. PREDNISOLON [Concomitant]
     Active Substance: PREDNISOLONE
     Indication: NEUTROPHILIC DERMATOSIS
     Dosage: 30 MG, QD
     Route: 065
  2. COSENTYX [Suspect]
     Active Substance: SECUKINUMAB
     Dosage: 300 MG, QW (5 WEEKLY)
     Route: 058
     Dates: start: 20161020, end: 20161020
  3. COSENTYX [Suspect]
     Active Substance: SECUKINUMAB
     Indication: NEUTROPHILIC DERMATOSIS
     Dosage: 300 MG, QW ( 5 WEEKLY)
     Route: 058
     Dates: start: 20160901
  4. PREDNISOLON [Concomitant]
     Active Substance: PREDNISOLONE
     Indication: VASCULITIS
     Dosage: 40 MG, UNK
     Route: 065

REACTIONS (4)
  - Off label use [Unknown]
  - Mononeuropathy multiplex [Not Recovered/Not Resolved]
  - Hypersensitivity vasculitis [Not Recovered/Not Resolved]
  - Peroneal nerve palsy [Not Recovered/Not Resolved]

NARRATIVE: CASE EVENT DATE: 20161017
